FAERS Safety Report 15097096 (Version 2)
Quarter: 2018Q4

REPORT INFORMATION
  Report Type: Report from Study
  Country: US (occurrence: US)
  Receive Date: 20180702
  Receipt Date: 20181102
  Transmission Date: 20190204
  Serious: Yes (Other)
  Sender: FDA-Public Use
  Company Number: US-SA-2017SA212405

PATIENT
  Age: 18 Year
  Sex: Male

DRUGS (1)
  1. LARONIDASE [Suspect]
     Active Substance: LARONIDASE
     Indication: MUCOPOLYSACCHARIDOSIS
     Dosage: 29,UNK,Q1
     Route: 041
     Dates: start: 20030523

REACTIONS (4)
  - Scoliosis [Unknown]
  - Infusion related reaction [Unknown]
  - Abdominal distension [Unknown]
  - Radial nerve palsy [Unknown]

NARRATIVE: CASE EVENT DATE: 20171012
